FAERS Safety Report 8300690-7 (Version None)
Quarter: 2012Q2

REPORT INFORMATION
  Report Type: 
  Country: None (occurrence: None)
  Receive Date: 20120420
  Receipt Date: 20120412
  Transmission Date: 20120825
  Serious: Yes (Other)
  Sender: FDA-Public Use
  Company Number: PHHO2012CA005840

PATIENT
  Sex: Male
  Weight: 65.4 kg

DRUGS (15)
  1. ILARIS [Suspect]
     Dosage: DOUBLE BLINDED
     Route: 058
     Dates: end: 20120328
  2. PANTOPRAZOLE [Concomitant]
     Indication: DYSPEPSIA
     Dosage: 40 MG, ID
     Route: 048
     Dates: start: 20111201
  3. BLINDED NO TREATMENT RECEIVED [Suspect]
     Indication: CARDIOVASCULAR EVENT PROPHYLAXIS
     Dosage: DOUBLE BLINDED
     Route: 058
     Dates: start: 20120315, end: 20120315
  4. BLINDED PLACEBO [Suspect]
     Indication: CARDIOVASCULAR EVENT PROPHYLAXIS
     Dosage: DOUBLE BLINDED
     Route: 058
     Dates: start: 20120315, end: 20120315
  5. ROSUVASTATIN [Concomitant]
     Indication: DYSLIPIDAEMIA
     Dosage: 40 MG, ID
     Route: 048
     Dates: start: 20100801
  6. PREGABALIN [Concomitant]
     Indication: OSTEOARTHRITIS
     Dosage: 75 MG, BID
     Route: 048
     Dates: start: 20080101
  7. TRANDOLAPRIL [Concomitant]
     Indication: HYPERTENSION
     Dosage: 3 MG, ID
     Route: 048
     Dates: start: 20100801
  8. ASPIRIN [Concomitant]
     Indication: THROMBOSIS PROPHYLAXIS
     Dosage: 80 MG, ID
     Route: 048
     Dates: start: 20070101
  9. BLINDED NO TREATMENT RECEIVED [Suspect]
     Dosage: DOUBLE BLINDED
     Route: 058
     Dates: end: 20120328
  10. ATENOLOL AND CHLORTHALIDONE [Concomitant]
     Indication: THROMBOSIS PROPHYLAXIS
     Dosage: 75 MG, ID
     Route: 048
     Dates: start: 20100801
  11. CARVEDILOL [Concomitant]
     Indication: HYPERTENSION
  12. ILARIS [Suspect]
     Indication: CARDIOVASCULAR EVENT PROPHYLAXIS
     Dosage: DOUBLE BLINDED
     Route: 058
     Dates: start: 20120315, end: 20120315
  13. PLACEBO [Suspect]
     Dosage: DOUBLE BLINDED
     Route: 058
     Dates: end: 20120328
  14. TAMSULOSIN HCL [Concomitant]
     Indication: BENIGN PROSTATIC HYPERPLASIA
     Dosage: 0.4 MG, ID
     Route: 048
     Dates: start: 20100101
  15. CARVEDILOL [Concomitant]
     Indication: MYOCARDIAL INFARCTION
     Dosage: 6.25 MG, ID
     Route: 048
     Dates: start: 20101119

REACTIONS (1)
  - INTESTINAL ADENOCARCINOMA [None]
